FAERS Safety Report 17412135 (Version 6)
Quarter: 2021Q4

REPORT INFORMATION
  Report Type: Spontaneous
  Country: US (occurrence: US)
  Receive Date: 20200213
  Receipt Date: 20211221
  Transmission Date: 20220303
  Serious: Yes (Other)
  Sender: FDA-Public Use
  Company Number: US-GILEAD-2020-0450634

PATIENT
  Age: 49 Year
  Sex: Male
  Weight: 65.76 kg

DRUGS (108)
  1. TRUVADA [Suspect]
     Active Substance: EMTRICITABINE\TENOFOVIR DISOPROXIL FUMARATE
     Indication: HIV infection
     Dosage: 1 DOSAGE FORM, QD
     Route: 048
     Dates: start: 201004, end: 201612
  2. TRUVADA [Suspect]
     Active Substance: EMTRICITABINE\TENOFOVIR DISOPROXIL FUMARATE
     Dosage: 1 DOSAGE FORM
     Route: 048
     Dates: start: 200811, end: 20161211
  3. TRUVADA [Suspect]
     Active Substance: EMTRICITABINE\TENOFOVIR DISOPROXIL FUMARATE
     Dosage: UNK
     Route: 048
     Dates: start: 20081111, end: 20170401
  4. NAPROXEN [Suspect]
     Active Substance: NAPROXEN
     Indication: Product used for unknown indication
     Dosage: 500 MG, PRN
     Route: 048
  5. BIKTARVY [Concomitant]
     Active Substance: BICTEGRAVIR SODIUM\EMTRICITABINE\TENOFOVIR ALAFENAMIDE FUMARATE
  6. ODEFSEY [Concomitant]
     Active Substance: EMTRICITABINE\RILPIVIRINE HYDROCHLORIDE\TENOFOVIR ALAFENAMIDE FUMARATE
  7. COMBIVIR [Concomitant]
     Active Substance: LAMIVUDINE\ZIDOVUDINE
  8. TIVICAY [Concomitant]
     Active Substance: DOLUTEGRAVIR SODIUM
  9. CITALOPRAM [Concomitant]
     Active Substance: CITALOPRAM HYDROBROMIDE
  10. AZT [Concomitant]
     Active Substance: ZIDOVUDINE
  11. MELOXICAM [Concomitant]
     Active Substance: MELOXICAM
  12. PREZCOBIX [Concomitant]
     Active Substance: COBICISTAT\DARUNAVIR ETHANOLATE
  13. ASPIRIN [Concomitant]
     Active Substance: ASPIRIN
  14. CELEBREX [Concomitant]
     Active Substance: CELECOXIB
  15. TYLENOL WITH CODEINE [Concomitant]
     Active Substance: ACETAMINOPHEN\CODEINE PHOSPHATE
  16. ALLOPURINOL [Concomitant]
     Active Substance: ALLOPURINOL
  17. TRIUMEQ [Concomitant]
     Active Substance: ABACAVIR SULFATE\DOLUTEGRAVIR SODIUM\LAMIVUDINE
  18. RENVELA [Concomitant]
     Active Substance: SEVELAMER CARBONATE
  19. ACYCLOVIR ABBOTT VIAL [Concomitant]
  20. ANDRODERM [Concomitant]
     Active Substance: TESTOSTERONE
  21. CHLORHEXIDINE GLUCONATE [Concomitant]
     Active Substance: CHLORHEXIDINE GLUCONATE
  22. CORDRAN [Concomitant]
     Active Substance: FLURANDRENOLIDE
  23. DENTALL [Concomitant]
  24. DOXEPIN [Concomitant]
     Active Substance: DOXEPIN
  25. FLUTICASONE [Concomitant]
     Active Substance: FLUTICASONE
  26. FOLBIC [Concomitant]
     Active Substance: CYANOCOBALAMIN\FOLIC ACID\PYRIDOXINE
  27. GABAPENTIN [Concomitant]
     Active Substance: GABAPENTIN
  28. HYDROCORTISONE VALERATE [Concomitant]
     Active Substance: HYDROCORTISONE VALERATE
  29. ISENTRESS [Concomitant]
     Active Substance: RALTEGRAVIR POTASSIUM
  30. LOPERAMIDE [Concomitant]
     Active Substance: LOPERAMIDE
  31. METHOCARBAMOL [Concomitant]
     Active Substance: METHOCARBAMOL
  32. MOMETASONE FUROATE [Concomitant]
     Active Substance: MOMETASONE FUROATE
  33. MUPIROCIN [Concomitant]
     Active Substance: MUPIROCIN
  34. NEXIUM I.V. [Concomitant]
     Active Substance: ESOMEPRAZOLE SODIUM
  35. PROMETHAZINE [Concomitant]
     Active Substance: PROMETHAZINE HYDROCHLORIDE
  36. SUCRALFATE [Concomitant]
     Active Substance: SUCRALFATE
  37. TRIGLIDE [Concomitant]
     Active Substance: FENOFIBRATE
  38. RESTASIS [Concomitant]
     Active Substance: CYCLOSPORINE
  39. BEPREVE [Concomitant]
     Active Substance: BEPOTASTINE BESILATE
  40. DEPO-TESTOSTERONE [Concomitant]
     Active Substance: TESTOSTERONE CYPIONATE
  41. TRIAMCINOLONE ACETONIDE [Concomitant]
     Active Substance: TRIAMCINOLONE ACETONIDE
  42. AVODART [Concomitant]
     Active Substance: DUTASTERIDE
  43. LISINOPRIL [Concomitant]
     Active Substance: LISINOPRIL
  44. BACLOFEN [Concomitant]
     Active Substance: BACLOFEN
  45. ZOMIG [Concomitant]
     Active Substance: ZOLMITRIPTAN
  46. HYDROXYZINE HYDROCHLORIDE [Concomitant]
     Active Substance: HYDROXYZINE HYDROCHLORIDE
  47. PERIOGARD [Concomitant]
     Active Substance: CHLORHEXIDINE GLUCONATE
  48. FINASTERIDE [Concomitant]
     Active Substance: FINASTERIDE
  49. MONTELUKAST [Concomitant]
     Active Substance: MONTELUKAST SODIUM
  50. ZERIT [Concomitant]
     Active Substance: STAVUDINE
  51. CLONIDINE [Concomitant]
     Active Substance: CLONIDINE
  52. AMLODIPINE BESYLATE [Concomitant]
     Active Substance: AMLODIPINE BESYLATE
  53. CARVEDILOL [Concomitant]
     Active Substance: CARVEDILOL
  54. NEPHRO VITE RX [Concomitant]
     Active Substance: ASCORBIC ACID\BIOTIN\CALCIUM PANTOTHENATE\CYANOCOBALAMIN\FOLIC ACID\NIACINAMIDE\PYRIDOXINE HYDROCHLO
  55. RENAGEL [SEVELAMER CARBONATE] [Concomitant]
  56. LAMIVUDINE [Concomitant]
     Active Substance: LAMIVUDINE
  57. POLYETHYLENE GLYCOL [Concomitant]
     Active Substance: POLYETHYLENE GLYCOL
  58. PRAMOSONE E [Concomitant]
     Active Substance: HYDROCORTISONE ACETATE\PRAMOXINE HYDROCHLORIDE
  59. FUROSEMIDE [Concomitant]
     Active Substance: FUROSEMIDE
  60. FLUOROURACIL [Concomitant]
     Active Substance: FLUOROURACIL
  61. AMITRIPTYLINE [Concomitant]
     Active Substance: AMITRIPTYLINE
  62. SENSIPAR [Concomitant]
     Active Substance: CINACALCET HYDROCHLORIDE
  63. PROGRAF [Concomitant]
     Active Substance: TACROLIMUS
  64. MYFORTIC [Concomitant]
     Active Substance: MYCOPHENOLATE SODIUM
  65. PREDNISONE [Concomitant]
     Active Substance: PREDNISONE
  66. VALCYTE [Concomitant]
     Active Substance: VALGANCICLOVIR HYDROCHLORIDE
  67. OMEPRAZOLE [Concomitant]
     Active Substance: OMEPRAZOLE
  68. VIAGRA [Concomitant]
     Active Substance: SILDENAFIL CITRATE
  69. TYLENOL EXTRA STRENGTH [Concomitant]
     Active Substance: ACETAMINOPHEN
  70. REQUIP [Concomitant]
     Active Substance: ROPINIROLE HYDROCHLORIDE
  71. MELATONIN [Concomitant]
     Active Substance: MELATONIN
  72. DAPSONE [Concomitant]
     Active Substance: DAPSONE
  73. MYCOPHENOLIC ACID [Concomitant]
     Active Substance: MYCOPHENOLIC ACID
  74. ESZOPICLONE [Concomitant]
     Active Substance: ESZOPICLONE
  75. BACTRIM [Concomitant]
     Active Substance: SULFAMETHOXAZOLE\TRIMETHOPRIM
  76. MAGNESIUM OXIDE [Concomitant]
     Active Substance: MAGNESIUM OXIDE
  77. ATOVAQUONE [Concomitant]
     Active Substance: ATOVAQUONE
  78. SUMATRIPTAN [Concomitant]
     Active Substance: SUMATRIPTAN
  79. MUCINEX [Concomitant]
     Active Substance: GUAIFENESIN
  80. EMTRICITABINE [Concomitant]
     Active Substance: EMTRICITABINE
  81. ALLEGRA [Concomitant]
     Active Substance: FEXOFENADINE HYDROCHLORIDE
  82. NYSTATIN [Concomitant]
     Active Substance: NYSTATIN
  83. NEURONTIN [Concomitant]
     Active Substance: GABAPENTIN
  84. AZITHROMYCIN [Concomitant]
     Active Substance: AZITHROMYCIN
  85. ALENDRONATE SODIUM [Concomitant]
     Active Substance: ALENDRONATE SODIUM
  86. LEVALBUTEROL HYDROCHLORIDE [Concomitant]
     Active Substance: LEVALBUTEROL HYDROCHLORIDE
  87. IMIQUIMOD [Concomitant]
     Active Substance: IMIQUIMOD
  88. LEVOFLOXACIN [Concomitant]
     Active Substance: LEVOFLOXACIN
  89. MIRALAX [Concomitant]
     Active Substance: POLYETHYLENE GLYCOL 3350
  90. DILAUDID [Concomitant]
     Active Substance: HYDROMORPHONE HYDROCHLORIDE
  91. FIORICET [Concomitant]
     Active Substance: ACETAMINOPHEN\BUTALBITAL\CAFFEINE
  92. ESCITALOPRAM OXALATE [Concomitant]
     Active Substance: ESCITALOPRAM OXALATE
  93. DOLUTEGRAVIR [Concomitant]
     Active Substance: DOLUTEGRAVIR
  94. ZOLMITRIPTAN [Concomitant]
     Active Substance: ZOLMITRIPTAN
  95. TERIPARATIDE RECOMBINANT [Concomitant]
  96. BUPROPION [Concomitant]
     Active Substance: BUPROPION
  97. DIVALPROEX SODIUM [Concomitant]
     Active Substance: DIVALPROEX SODIUM
  98. ACETAMINOPHEN\OXYCODONE HYDROCHLORIDE [Concomitant]
     Active Substance: ACETAMINOPHEN\OXYCODONE HYDROCHLORIDE
  99. CODEINE GUAIFENESIN [Concomitant]
     Active Substance: CODEINE PHOSPHATE\GUAIFENESIN
  100. DEPAKOTE [Concomitant]
     Active Substance: DIVALPROEX SODIUM
  101. LAMOTRIGINE [Concomitant]
     Active Substance: LAMOTRIGINE
  102. LIDOCAINE [Concomitant]
     Active Substance: LIDOCAINE
  103. PRILOCAINE [Concomitant]
     Active Substance: PRILOCAINE
  104. FLEET LAXATIVE [Concomitant]
  105. PANTOPRAZOLE [Concomitant]
     Active Substance: PANTOPRAZOLE
  106. PENICILLIN [Concomitant]
     Active Substance: PENICILLIN
  107. TACROLIMUS [Concomitant]
     Active Substance: TACROLIMUS
  108. RETROVIR [Concomitant]
     Active Substance: ZIDOVUDINE

REACTIONS (20)
  - End stage renal disease [Not Recovered/Not Resolved]
  - Chronic kidney disease [Not Recovered/Not Resolved]
  - Osteoporosis [Not Recovered/Not Resolved]
  - Spinal cord injury [Not Recovered/Not Resolved]
  - Renal tubular injury [Unknown]
  - Multiple fractures [Unknown]
  - Arteriovenous malformation [Unknown]
  - Rotator cuff repair [Not Recovered/Not Resolved]
  - Upper limb fracture [Not Recovered/Not Resolved]
  - Hip arthroplasty [Not Recovered/Not Resolved]
  - Renal failure [Unknown]
  - Bone density decreased [Unknown]
  - Carpal tunnel syndrome [Not Recovered/Not Resolved]
  - Osteopenia [Not Recovered/Not Resolved]
  - Pain [Unknown]
  - Emotional distress [Unknown]
  - Anxiety [Unknown]
  - Anhedonia [Unknown]
  - Economic problem [Unknown]
  - Aortic aneurysm [Unknown]

NARRATIVE: CASE EVENT DATE: 20110101
